FAERS Safety Report 6902757-4 (Version None)
Quarter: 2010Q3

REPORT INFORMATION
  Report Type: 
  Country: None (occurrence: None)
  Receive Date: 20100803
  Receipt Date: 20080829
  Transmission Date: 20110219
  Serious: No
  Sender: FDA-Public Use
  Company Number: US-PFIZER INC-2008054482

PATIENT
  Sex: Female

DRUGS (6)
  1. LYRICA [Suspect]
     Indication: NECK PAIN
     Dates: start: 20080525, end: 20080614
  2. TEGRETOL [Concomitant]
  3. ATIVAN [Concomitant]
  4. OXYCODONE [Concomitant]
  5. IBUPROFEN [Concomitant]
  6. LACTULOSE [Concomitant]

REACTIONS (2)
  - BACK PAIN [None]
  - DRUG INEFFECTIVE [None]
